FAERS Safety Report 16862897 (Version 3)
Quarter: 2019Q4

REPORT INFORMATION
  Report Type: Report from Study
  Country: US (occurrence: US)
  Receive Date: 20190927
  Receipt Date: 20191014
  Transmission Date: 20200122
  Serious: Yes (Hospitalization, Other)
  Sender: FDA-Public Use
  Company Number: US-ROCHE-2382172

PATIENT
  Age: 44 Year
  Sex: Female
  Weight: 62.65 kg

DRUGS (8)
  1. ZANTAC [Concomitant]
     Active Substance: RANITIDINE HYDROCHLORIDE
  2. OCREVUS [Suspect]
     Active Substance: OCRELIZUMAB
     Indication: RELAPSING-REMITTING MULTIPLE SCLEROSIS
     Dosage: 1ST HALF DOSE OF OCRELIZUMAB
     Route: 042
     Dates: start: 20190212, end: 20190226
  3. BENADRYL [Concomitant]
     Active Substance: DIPHENHYDRAMINE HYDROCHLORIDE
  4. SODIUM CHLORIDE. [Concomitant]
     Active Substance: SODIUM CHLORIDE
  5. BACLOFEN. [Concomitant]
     Active Substance: BACLOFEN
     Indication: MUSCLE SPASMS
     Route: 065
  6. OCREVUS [Suspect]
     Active Substance: OCRELIZUMAB
     Indication: SECONDARY PROGRESSIVE MULTIPLE SCLEROSIS
     Route: 042
     Dates: start: 20190814
  7. RITUXAN [Suspect]
     Active Substance: RITUXIMAB
     Indication: SECONDARY PROGRESSIVE MULTIPLE SCLEROSIS
     Dosage: HAD TWO DOSES LAST YEAR
     Route: 065
  8. ZOLPIDEM [Concomitant]
     Active Substance: ZOLPIDEM TARTRATE

REACTIONS (11)
  - Musculoskeletal disorder [Recovered/Resolved]
  - Dysstasia [Recovered/Resolved]
  - Dizziness [Recovered/Resolved]
  - Balance disorder [Recovered/Resolved]
  - Herpes zoster [Recovered/Resolved]
  - Multiple sclerosis relapse [Recovered/Resolved]
  - Dyspnoea [Recovered/Resolved]
  - Intentional product use issue [Unknown]
  - Off label use [Unknown]
  - Chest discomfort [Recovered/Resolved]
  - Headache [Recovered/Resolved]

NARRATIVE: CASE EVENT DATE: 20190212
